FAERS Safety Report 5071330-8 (Version None)
Quarter: 2006Q3

REPORT INFORMATION
  Report Type: 
  Country: None (occurrence: None)
  Receive Date: 20060804
  Receipt Date: 20060331
  Transmission Date: 20061208
  Serious: Yes (Hospitalization)
  Sender: FDA-Public Use
  Company Number: US-ROCHE-442933

PATIENT
  Age: 49 Year
  Sex: Female

DRUGS (8)
  1. PEGASYS [Suspect]
     Dosage: - ROUTE REPORTED AS INK.
     Route: 050
     Dates: start: 20051127, end: 20060701
  2. COPEGUS [Suspect]
     Dosage: - THREE IN THE MORNING. - THREE IN THE EVENING.
     Route: 048
     Dates: start: 20051127, end: 20060701
  3. NEUPOGEN [Suspect]
     Route: 065
     Dates: start: 20060315
  4. LORAZEPAM [Concomitant]
     Indication: DEPRESSION
  5. PAXIL [Concomitant]
     Indication: DEPRESSION
     Dates: end: 20060629
  6. TRAZODONE HCL [Concomitant]
     Indication: DEPRESSION
     Route: 048
     Dates: end: 20060629
  7. DURICEF [Concomitant]
     Indication: RHEUMATOID ARTHRITIS
  8. NORTRIPTYLINE HCL [Concomitant]
     Indication: DEPRESSION
     Route: 048
     Dates: end: 20060629

REACTIONS (10)
  - ANAEMIA [None]
  - DEHYDRATION [None]
  - DEPRESSION [None]
  - DYSPEPSIA [None]
  - HELICOBACTER PYLORI IDENTIFICATION TEST POSITIVE [None]
  - INSOMNIA [None]
  - NAUSEA [None]
  - SUICIDAL IDEATION [None]
  - VISION BLURRED [None]
  - VOMITING [None]
